FAERS Safety Report 20403870 (Version 2)
Quarter: 2022Q1

REPORT INFORMATION
  Report Type: Report from Study
  Country: DE (occurrence: DE)
  Receive Date: 20220131
  Receipt Date: 20220309
  Transmission Date: 20220423
  Serious: Yes (Other)
  Sender: FDA-Public Use
  Company Number: DE-PFM-2022-00643

PATIENT
  Age: 59 Year
  Sex: Female
  Weight: 71 kg

DRUGS (8)
  1. NERATINIB [Suspect]
     Active Substance: NERATINIB
     Indication: Breast cancer
     Dosage: 240 MG/DAY
     Route: 048
     Dates: start: 20210106
  2. NERATINIB [Suspect]
     Active Substance: NERATINIB
     Dosage: 200 MG/DAY
     Route: 048
     Dates: start: 20210106
  3. NERATINIB [Suspect]
     Active Substance: NERATINIB
     Dosage: 120 MG/DAY
     Route: 048
     Dates: start: 20210106, end: 20220105
  4. LOPERAMIDE [Concomitant]
     Active Substance: LOPERAMIDE
     Indication: Prophylaxis against diarrhoea
     Dosage: 4 MG, PRN (AS NEEDED) ORAL
     Route: 048
     Dates: start: 20211210, end: 20220105
  5. Corminaty [Concomitant]
     Indication: Prophylaxis
     Dosage: 30 UG, UNK
     Route: 065
     Dates: start: 20211209, end: 20211209
  6. Corminaty [Concomitant]
     Dosage: 30 UG, UNK
     Route: 065
     Dates: start: 20220106, end: 20220106
  7. FILGRASTIM [Concomitant]
     Active Substance: FILGRASTIM
     Indication: Neutropenia
     Dosage: 48 UG, UNK
     Route: 065
     Dates: start: 20211209, end: 20211209
  8. FILGRASTIM [Concomitant]
     Active Substance: FILGRASTIM
     Dosage: 48 UG, UNK
     Route: 065
     Dates: start: 20220106, end: 20220106

REACTIONS (13)
  - Thrombocytopenia [Not Recovered/Not Resolved]
  - Pyrexia [Unknown]
  - Acute leukaemia [Unknown]
  - Nausea [Recovered/Resolved]
  - Nausea [Recovered/Resolved]
  - Vomiting [Recovered/Resolved]
  - Fatigue [Recovered/Resolved]
  - Mucosal inflammation [Recovered/Resolved]
  - Nausea [Recovered/Resolved]
  - Vomiting [Recovered/Resolved]
  - Fatigue [Not Recovered/Not Resolved]
  - Breath sounds abnormal [Unknown]
  - Full blood count abnormal [Unknown]

NARRATIVE: CASE EVENT DATE: 20211210
